FAERS Safety Report 8277097-4 (Version None)
Quarter: 2012Q2

REPORT INFORMATION
  Report Type: 
  Country: None (occurrence: None)
  Receive Date: 20120412
  Receipt Date: 20120329
  Transmission Date: 20120825
  Serious: Yes (Death, Hospitalization)
  Sender: FDA-Public Use
  Company Number: ES-CELGENEUS-144-50794-12033527

PATIENT
  Sex: Male
  Weight: 80 kg

DRUGS (6)
  1. FINASTERIDE [Concomitant]
     Indication: PROSTATISM
     Dosage: 1 TABLET
     Route: 048
  2. VIDAZA [Suspect]
     Indication: ACUTE MYELOID LEUKAEMIA
     Dosage: 145 MILLIGRAM
     Route: 065
     Dates: start: 20090721, end: 20101014
  3. AMIODARONE HCL [Concomitant]
     Indication: CARDIOMYOPATHY
     Dosage: 1 TABLET
     Route: 048
  4. TAMSULOSIN HCL [Concomitant]
     Indication: PROSTATISM
     Dosage: 1 TABLET
     Route: 048
  5. ENALAPRIL MALEATE [Concomitant]
     Dosage: 20 MILLIGRAM
     Route: 065
  6. HEPARIN SODIUM [Concomitant]
     Indication: ATRIAL FIBRILLATION
     Dosage: 5000 IU (INTERNATIONAL UNIT)
     Route: 065

REACTIONS (2)
  - ACUTE MYELOID LEUKAEMIA [None]
  - BACTERIAL PROSTATITIS [None]
